FAERS Safety Report 7946508-3 (Version None)
Quarter: 2011Q4

REPORT INFORMATION
  Report Type: 
  Country: None (occurrence: None)
  Receive Date: 20111129
  Receipt Date: 20111117
  Transmission Date: 20120403
  Serious: Yes (Hospitalization, Other)
  Sender: FDA-Public Use
  Company Number: US-ELI_LILLY_AND_COMPANY-US201010005999

PATIENT
  Sex: Female

DRUGS (4)
  1. SIMVASTATIN [Concomitant]
  2. FORTEO [Suspect]
     Dosage: 20 UG, QD
  3. FORTEO [Suspect]
     Dosage: 20 UG, QD
  4. FORTEO [Suspect]
     Indication: OSTEOPOROSIS
     Dosage: 20 UG, DAILY (1/D)
     Dates: start: 20100714

REACTIONS (5)
  - ATRIAL FIBRILLATION [None]
  - BONE PAIN [None]
  - THYROID MASS [None]
  - PAIN IN EXTREMITY [None]
  - ARTHRALGIA [None]
